FAERS Safety Report 6992626-6 (Version None)
Quarter: 2010Q3

REPORT INFORMATION
  Report Type: 
  Country: None (occurrence: None)
  Receive Date: 20100917
  Receipt Date: 20100908
  Transmission Date: 20110219
  Serious: Yes (Hospitalization)
  Sender: FDA-Public Use
  Company Number: CH-WYE-H17450310

PATIENT
  Age: 38 Year
  Sex: Female

DRUGS (4)
  1. PANTOPRAZOLE SODIUM [Suspect]
     Indication: HYPERCHLORHYDRIA
  2. TRANDATE [Suspect]
     Indication: ESSENTIAL HYPERTENSION
     Dates: start: 20091203
  3. EUTHYROX [Concomitant]
     Indication: HYPOTHYROIDISM
  4. COMILORID [Suspect]
     Indication: ESSENTIAL HYPERTENSION
     Dosage: UNKNOWN
     Dates: start: 20090101, end: 20091202

REACTIONS (2)
  - DRUG EXPOSURE DURING PREGNANCY [None]
  - PREMATURE RUPTURE OF MEMBRANES [None]
